FAERS Safety Report 6170022-1 (Version None)
Quarter: 2009Q2

REPORT INFORMATION
  Report Type: 
  Country: None (occurrence: None)
  Receive Date: 20090428
  Receipt Date: 20090422
  Transmission Date: 20091009
  Serious: Yes (Other)
  Sender: FDA-Public Use
  Company Number: FR-BRISTOL-MYERS SQUIBB COMPANY-14602056

PATIENT
  Age: 57 Year
  Sex: Male

DRUGS (10)
  1. ERBITUX [Suspect]
     Indication: SQUAMOUS CELL CARCINOMA
     Dosage: 1 COURSE:01OCT08-632MG;2:08OCT;3:15OCT;4:22OCT;5:29OCT;6:05NOV;7:12NOV;8;19NOV. ALL 250MG/M2.
     Route: 042
     Dates: start: 20081001, end: 20081119
  2. RADIOTHERAPY [Concomitant]
     Indication: SQUAMOUS CELL CARCINOMA
  3. ZOCOR [Concomitant]
     Route: 048
  4. ACEBUTOLOL [Concomitant]
  5. KARDEGIC [Concomitant]
     Indication: MYOCARDIAL INFARCTION
     Route: 048
  6. TRIATEC [Concomitant]
     Dosage: TAKEN AS TAB
     Route: 048
  7. XANAX [Concomitant]
     Dosage: TAKEN AS TAB
     Route: 048
  8. ATARAX [Concomitant]
     Dosage: TAKEN AS TAB
     Route: 048
  9. POLARAMINE [Concomitant]
     Dosage: SOLUTION FOR INJECTION.5MG,30MIN
     Route: 042
     Dates: start: 20081001, end: 20081119
  10. SOLU-MEDROL [Concomitant]
     Dosage: SOLUTION FOR INJECTION.120MG,30MIN
     Route: 042
     Dates: start: 20081001, end: 20081119

REACTIONS (2)
  - ERYTHEMA MULTIFORME [None]
  - TOXIC SKIN ERUPTION [None]
